FAERS Safety Report 10944154 (Version 1)
Quarter: 2015Q1

REPORT INFORMATION
  Report Type: Spontaneous
  Country: ES (occurrence: None)
  Receive Date: 20150318
  Receipt Date: 20150318
  Transmission Date: 20150721
  Serious: Yes (Hospitalization, Other)
  Sender: FDA-Public Use
  Company Number: ES-ZYDUS-007245

PATIENT
  Age: 17 Year
  Sex: Female

DRUGS (1)
  1. HYDROXYCHLOROQUINE (HYDROXYCHLOROQUINE) [Suspect]
     Active Substance: HYDROXYCHLOROQUINE

REACTIONS (1)
  - Anaphylactic reaction [None]
